FAERS Safety Report 5192408-4 (Version None)
Quarter: 2006Q4

REPORT INFORMATION
  Report Type: 
  Country: None (occurrence: None)
  Receive Date: 20061227
  Receipt Date: 20061218
  Transmission Date: 20070319
  Serious: Yes (Disabling)
  Sender: FDA-Public Use
  Company Number: FR-PFIZER INC-2006155054

PATIENT
  Sex: Male

DRUGS (7)
  1. AMLOR [Suspect]
     Route: 048
  2. EZETROL [Concomitant]
  3. LEVOTHYROXINE SODIUM [Concomitant]
  4. TRIATEC [Concomitant]
  5. VASTAREL [Concomitant]
  6. PLAVIX [Concomitant]
  7. ASPIRIN [Concomitant]

REACTIONS (1)
  - VISUAL ACUITY REDUCED [None]
